FAERS Safety Report 13486074 (Version 1)
Quarter: 2017Q2

REPORT INFORMATION
  Report Type: Spontaneous
  Country: US (occurrence: US)
  Receive Date: 20170426
  Receipt Date: 20170426
  Transmission Date: 20170830
  Serious: Yes (Disabling, Other)
  Sender: FDA-Public Use
  Company Number: None

PATIENT
  Age: 61 Year
  Sex: Female
  Weight: 108 kg

DRUGS (14)
  1. CANE [Concomitant]
  2. WALKER SEAT [Concomitant]
     Active Substance: DEVICE
  3. MAGNESIUM [Concomitant]
     Active Substance: MAGNESIUM
  4. GINGER. [Concomitant]
     Active Substance: GINGER
  5. NEXIUM [Suspect]
     Active Substance: ESOMEPRAZOLE MAGNESIUM
     Indication: GASTROOESOPHAGEAL REFLUX DISEASE
     Dosage: ?          QUANTITY:30 CAPSULE(S);?
     Route: 048
  6. FOLIC ACID. [Concomitant]
     Active Substance: FOLIC ACID
  7. TRANSITIONS HORMONES [Concomitant]
  8. GLUCOSAMINE [Concomitant]
     Active Substance: GLUCOSAMINE
  9. VITAMIN D [Concomitant]
     Active Substance: CHOLECALCIFEROL
  10. PROBIOTICS [Concomitant]
     Active Substance: PROBIOTICS NOS
  11. SALINE WASH FOR EYES [Concomitant]
  12. CHONDROITIN [Concomitant]
     Active Substance: CHONDROITIN
  13. MSM [Concomitant]
     Active Substance: DIMETHYL SULFONE
  14. COLACE [Concomitant]
     Active Substance: DOCUSATE SODIUM

REACTIONS (7)
  - Gastrointestinal tract irritation [None]
  - Unevaluable event [None]
  - Product substitution issue [None]
  - Abdominal distension [None]
  - Drug ineffective [None]
  - Eating disorder [None]
  - Abdominal pain upper [None]

NARRATIVE: CASE EVENT DATE: 20160517
